FAERS Safety Report 5451767-5 (Version None)
Quarter: 2007Q3

REPORT INFORMATION
  Report Type: 
  Country: None (occurrence: None)
  Receive Date: 20070913
  Receipt Date: 20070705
  Transmission Date: 20080115
  Serious: Yes (Other)
  Sender: FDA-Public Use
  Company Number: AU-MERCK-0706AUS00049

PATIENT
  Age: 80 Year
  Sex: Female

DRUGS (4)
  1. FOSAMAX [Suspect]
     Indication: OSTEOPOROSIS
     Route: 048
     Dates: start: 20011012, end: 20070201
  2. CALCIUM CITRATE [Concomitant]
     Route: 065
  3. ERGOCALCIFEROL [Concomitant]
     Route: 065
  4. VITAMIN D (UNSPECIFIED) [Concomitant]
     Route: 065

REACTIONS (7)
  - BREAST CANCER IN SITU [None]
  - GINGIVAL BLEEDING [None]
  - IMPAIRED HEALING [None]
  - LOOSE TOOTH [None]
  - LYMPHADENITIS [None]
  - OSTEONECROSIS [None]
  - TOOTH INFECTION [None]
